FAERS Safety Report 24795314 (Version 1)
Quarter: 2024Q4

REPORT INFORMATION
  Report Type: Spontaneous
  Country: US (occurrence: None)
  Receive Date: 20241231
  Receipt Date: 20241231
  Transmission Date: 20250115
  Serious: Yes (Death)
  Sender: Public
  Company Number: None

PATIENT
  Age: 87 Year
  Sex: Male
  Weight: 68.9 kg

DRUGS (21)
  1. VENOFER [Suspect]
     Active Substance: IRON SUCROSE
     Indication: Anaemia of chronic disease
     Dosage: 300 MG INTRAVENOUS DRIP
     Route: 041
     Dates: start: 20241225, end: 20241225
  2. VENOFER [Suspect]
     Active Substance: IRON SUCROSE
     Indication: Nephrogenic anaemia
  3. QUETIAPINE [Suspect]
     Active Substance: QUETIAPINE
  4. FLOMAX [Suspect]
     Active Substance: TAMSULOSIN HYDROCHLORIDE
  5. cholecalciferol 1000 units [Concomitant]
     Dates: start: 20140801
  6. coenzyme q10 100 mg [Concomitant]
     Dates: start: 20140801
  7. FINASTERIDE [Concomitant]
     Active Substance: FINASTERIDE
     Dates: start: 20200601
  8. polyethylene glycol 8.5g [Concomitant]
     Dates: start: 20190901
  9. RIVAROXABAN [Concomitant]
     Active Substance: RIVAROXABAN
     Dates: start: 20181201, end: 20241217
  10. senna/docusate 8.6/50 mg [Concomitant]
     Dates: start: 20241217
  11. quetiapine 25 mg prn [Concomitant]
     Dates: start: 20241219, end: 20241219
  12. oxycodone 5 mg q4h prn [Concomitant]
     Dates: start: 20241217
  13. olanzapine 5 mg q8h prn [Concomitant]
     Dates: start: 20241219
  14. METOPROLOL TARTRATE [Concomitant]
     Active Substance: METOPROLOL TARTRATE
     Dates: start: 20241222
  15. melatonin 3 mg [Concomitant]
     Dates: start: 20241217
  16. acetaminophen 650 mg q4h prn [Concomitant]
     Dates: start: 20241217
  17. ceftriaxone 2000 mg [Concomitant]
     Dates: start: 20241217, end: 20241218
  18. DILTIAZEM [Concomitant]
     Active Substance: DILTIAZEM
     Dates: start: 20241217, end: 20241217
  19. DEXMEDETOMIDINE [Concomitant]
     Active Substance: DEXMEDETOMIDINE
     Dates: start: 20241219, end: 20241220
  20. ALFUZOSIN [Concomitant]
     Active Substance: ALFUZOSIN
  21. AMLODIPINE [Concomitant]
     Active Substance: AMLODIPINE BESYLATE

REACTIONS (12)
  - Infusion related reaction [None]
  - Unresponsive to stimuli [None]
  - Tremor [None]
  - Hypotension [None]
  - Hypopnoea [None]
  - Pulse absent [None]
  - Cardio-respiratory arrest [None]
  - Angioedema [None]
  - Anaphylactic reaction [None]
  - Swollen tongue [None]
  - Pharyngeal swelling [None]
  - Dizziness [None]

NARRATIVE: CASE EVENT DATE: 20241225
